FAERS Safety Report 25489676 (Version 1)
Quarter: 2025Q2

REPORT INFORMATION
  Report Type: Spontaneous
  Country: BR (occurrence: BR)
  Receive Date: 20250627
  Receipt Date: 20250627
  Transmission Date: 20250716
  Serious: Yes (Other)
  Sender: BAYER HEALTHCARE PHARMACEUTICALS INC.
  Company Number: BR-BAYER-2025A081549

PATIENT
  Age: 68 Year
  Sex: Male

DRUGS (4)
  1. STIVARGA [Suspect]
     Active Substance: REGORAFENIB MONOHYDRATE
     Indication: Colon cancer
     Dosage: 120 MG, QD FOR 21 DAYS AND 7 DAY BREAK
     Dates: start: 20220228
  2. STIVARGA [Suspect]
     Active Substance: REGORAFENIB MONOHYDRATE
     Indication: Metastases to lung
     Dosage: 80 MG, QD
     Dates: start: 20250501
  3. COBAMAMIDE\CYPROHEPTADINE HYDROCHLORIDE [Suspect]
     Active Substance: COBAMAMIDE\CYPROHEPTADINE HYDROCHLORIDE
     Dates: start: 202505
  4. CODEINE [Concomitant]
     Active Substance: CODEINE
     Dosage: 10 ML, QID

REACTIONS (8)
  - Decreased appetite [None]
  - Somnolence [None]
  - Nausea [None]
  - Asthenia [None]
  - Cough [None]
  - Poor quality sleep [None]
  - Somnambulism [None]
  - Product use issue [None]

NARRATIVE: CASE EVENT DATE: 20220228
